FAERS Safety Report 6237668-3 (Version None)
Quarter: 2009Q2

REPORT INFORMATION
  Report Type: 
  Country: None (occurrence: None)
  Receive Date: 20090611
  Receipt Date: 20090529
  Transmission Date: 20091009
  Serious: Yes (Other)
  Sender: FDA-Public Use
  Company Number: US-WYE-H09543709

PATIENT
  Age: 54 Year
  Sex: Male
  Weight: 88.8 kg

DRUGS (14)
  1. BENEFIX [Suspect]
     Indication: FACTOR VIII DEFICIENCY
     Dosage: 8000 IU 1X PER 1 DAY, INTRAVENOUS
     Route: 042
     Dates: start: 20090528, end: 20090528
  2. BENEFIX [Suspect]
     Indication: HAEMORRHAGE
     Dosage: 8000 IU 1X PER 1 DAY, INTRAVENOUS
     Route: 042
     Dates: start: 20090528, end: 20090528
  3. BENEFIX [Suspect]
     Indication: FACTOR VIII DEFICIENCY
     Dosage: 8000 IU 1X PER 1 DAY, INTRAVENOUS
     Route: 042
     Dates: start: 20090529, end: 20090529
  4. BENEFIX [Suspect]
     Indication: HAEMORRHAGE
     Dosage: 8000 IU 1X PER 1 DAY, INTRAVENOUS
     Route: 042
     Dates: start: 20090529, end: 20090529
  5. BENEFIX [Suspect]
  6. KALETRA [Concomitant]
  7. VICODIN [Concomitant]
  8. LEXAPRO [Concomitant]
  9. NEXIUM [Concomitant]
  10. BACTRIM DS [Concomitant]
  11. ZITHROMAX [Concomitant]
  12. DIOVAN HCT [Concomitant]
  13. HYDROCHLOROTHIAZIDE [Concomitant]
  14. AMBIEN [Concomitant]

REACTIONS (6)
  - CATHETER RELATED INFECTION [None]
  - CHILLS [None]
  - HYPERHIDROSIS [None]
  - NAUSEA [None]
  - PAIN [None]
  - TREMOR [None]
